FAERS Safety Report 11889711 (Version 1)
Quarter: 2016Q1

REPORT INFORMATION
  Report Type: Spontaneous
  Country: GB (occurrence: GB)
  Receive Date: 20160105
  Receipt Date: 20160105
  Transmission Date: 20160526
  Serious: Yes (Death, Hospitalization)
  Sender: FDA-Public Use
  Company Number: GB-IPCA LABORATORIES LIMITED-IPC201512-000923

PATIENT
  Age: 39 Year
  Sex: Male
  Weight: 88 kg

DRUGS (3)
  1. METHADONE [Suspect]
     Active Substance: METHADONE HYDROCHLORIDE
  2. TRAMADOL. [Suspect]
     Active Substance: TRAMADOL
  3. DIAZEPAM. [Suspect]
     Active Substance: DIAZEPAM

REACTIONS (5)
  - Varices oesophageal [Unknown]
  - Cirrhosis alcoholic [Fatal]
  - Jaundice [Unknown]
  - Cardiac arrest [Fatal]
  - Hepatic cirrhosis [Fatal]
